FAERS Safety Report 14994811 (Version 3)
Quarter: 2019Q3

REPORT INFORMATION
  Report Type: Spontaneous
  Country: US (occurrence: US)
  Receive Date: 20180611
  Receipt Date: 20190716
  Transmission Date: 20191004
  Serious: No
  Sender: FDA-Public Use
  Company Number: US-PFIZER INC-2018235268

PATIENT
  Age: 17 Year
  Sex: Female
  Weight: 54.42 kg

DRUGS (5)
  1. QUILLICHEW ER [Suspect]
     Active Substance: METHYLPHENIDATE HYDROCHLORIDE
     Dosage: 10 MG, DAILY (BY SPLITTING THE QUILLICHEW ER 20 MG IN HALF)
  2. XANAX [Concomitant]
     Active Substance: ALPRAZOLAM
     Indication: ANXIETY
     Dosage: 0.5 MG, 2X/DAY
     Route: 048
  3. QUILLICHEW ER [Suspect]
     Active Substance: METHYLPHENIDATE HYDROCHLORIDE
     Indication: ATTENTION DEFICIT/HYPERACTIVITY DISORDER
     Dosage: 40 MG, 1X/DAY
     Dates: start: 2017
  4. ZYPREXA [Concomitant]
     Active Substance: OLANZAPINE
     Indication: PSYCHOTIC DISORDER
     Dosage: 10 MG, 1X/DAY(ONCE DAILY BY MOUTH)
     Route: 048
     Dates: start: 201804
  5. QUILLICHEW ER [Suspect]
     Active Substance: METHYLPHENIDATE HYDROCHLORIDE
     Dosage: 20 MG, UNK

REACTIONS (4)
  - Aggression [Unknown]
  - Incorrect dose administered [Unknown]
  - Agitation [Not Recovered/Not Resolved]
  - Drug ineffective [Not Recovered/Not Resolved]

NARRATIVE: CASE EVENT DATE: 2017
